FAERS Safety Report 7379827-2 (Version None)
Quarter: 2011Q1

REPORT INFORMATION
  Report Type: 
  Country: None (occurrence: None)
  Receive Date: 20110329
  Receipt Date: 20110314
  Transmission Date: 20110831
  Serious: Yes (Other)
  Sender: FDA-Public Use
  Company Number: FR-CELGENEUS-056-21880-11031732

PATIENT

DRUGS (4)
  1. BUSILVEX [Concomitant]
     Indication: MULTIPLE MYELOMA
     Route: 065
  2. ANTI-LYMPHOCYTIC SERUM [Concomitant]
     Indication: MULTIPLE MYELOMA
     Route: 065
  3. REVLIMID [Suspect]
     Indication: MULTIPLE MYELOMA
     Route: 048
  4. FLUDARABINE [Concomitant]
     Indication: MULTIPLE MYELOMA
     Route: 065

REACTIONS (4)
  - ACUTE GRAFT VERSUS HOST DISEASE [None]
  - HAEMATOTOXICITY [None]
  - DISEASE PROGRESSION [None]
  - ASTHENIA [None]
